FAERS Safety Report 21093160 (Version 1)
Quarter: 2022Q3

REPORT INFORMATION
  Report Type: Spontaneous
  Country: US (occurrence: None)
  Receive Date: 20220715
  Receipt Date: 20220715
  Transmission Date: 20221026
  Serious: No
  Sender: FDA-Public Use
  Company Number: None

PATIENT
  Age: 68 Year
  Sex: Female
  Weight: 46.27 kg

DRUGS (14)
  1. CAPECITABINE [Suspect]
     Active Substance: CAPECITABINE
     Indication: Rectal cancer
     Dosage: FREQUENCY : TWICE A DAY;?
     Route: 048
     Dates: end: 20220715
  2. CHONDROITIN SULFATE [Concomitant]
  3. EFFEXOR XR [Concomitant]
  4. FENTANYL [Concomitant]
     Active Substance: FENTANYL
  5. GABAPENTIN [Concomitant]
  6. GLUCOSAMINE [Concomitant]
  7. LORAZEPAM [Concomitant]
  8. MOVANTIK [Concomitant]
  9. ONDANSETRON [Concomitant]
  10. OXYCODONE [Concomitant]
  11. SENNA [Concomitant]
  12. TYLENOL 8 HOUR ARTHRITIS PAIN [Concomitant]
  13. VITAMIN B12 [Concomitant]
  14. VITAMIN D3 [Concomitant]

REACTIONS (2)
  - Disease progression [None]
  - Therapy cessation [None]

NARRATIVE: CASE EVENT DATE: 20220715
